FAERS Safety Report 8900207 (Version 2)
Quarter: 2012Q4

REPORT INFORMATION
  Report Type: Report from Study
  Country: US (occurrence: US)
  Receive Date: 20121109
  Receipt Date: 20121115
  Transmission Date: 20130627
  Serious: Yes (Hospitalization)
  Sender: FDA-Public Use
  Company Number: US-ABBOTT-12P-163-0998976-00

PATIENT
  Age: 44 Year
  Sex: Male

DRUGS (4)
  1. HUMIRA [Suspect]
     Indication: CROHN^S DISEASE
     Dosage: 40 mg initial dose -No loading dose ordered
     Dates: start: 20121012
  2. PREDNISONE [Concomitant]
     Indication: CROHN^S DISEASE
     Dosage: 5 mg daily
     Route: 048
  3. PROTONIX [Concomitant]
     Indication: CROHN^S DISEASE
     Dosage: 30 or 40 mg daily
     Route: 048
  4. PROTONIX [Concomitant]
     Indication: HYPERCHLORHYDRIA

REACTIONS (6)
  - Malaise [Not Recovered/Not Resolved]
  - Nausea [Recovered/Resolved]
  - Vomiting [Recovered/Resolved]
  - Diarrhoea [Recovered/Resolved]
  - Rectal haemorrhage [Recovered/Resolved]
  - Injection site pain [Recovered/Resolved]
